FAERS Safety Report 16250414 (Version 1)
Quarter: 2019Q2

REPORT INFORMATION
  Report Type: Spontaneous
  Country: US (occurrence: US)
  Receive Date: 20190429
  Receipt Date: 20190429
  Transmission Date: 20190711
  Serious: Yes (Death, Hospitalization)
  Sender: FDA-Public Use
  Company Number: US-PFIZER INC-2019177615

PATIENT
  Age: 64 Year
  Sex: Female

DRUGS (3)
  1. FLUDARABINE PHOSPHATE. [Suspect]
     Active Substance: FLUDARABINE PHOSPHATE
     Indication: NON-HODGKIN^S LYMPHOMA RECURRENT
     Dosage: UNK
  2. CYCLOPHOSPHAMIDE. [Concomitant]
     Active Substance: CYCLOPHOSPHAMIDE
     Indication: NON-HODGKIN^S LYMPHOMA RECURRENT
     Dosage: UNK
  3. RITUXIMAB. [Concomitant]
     Active Substance: RITUXIMAB
     Indication: NON-HODGKIN^S LYMPHOMA RECURRENT
     Dosage: UNK (5 MONTHS PRIOR)

REACTIONS (6)
  - Pancreatitis viral [Fatal]
  - Hepatitis viral [Fatal]
  - Cytomegalovirus infection [Fatal]
  - Enterocolitis viral [Fatal]
  - Varicella zoster virus infection [Fatal]
  - Herpes simplex [Fatal]
